FAERS Safety Report 13916085 (Version 4)
Quarter: 2017Q4

REPORT INFORMATION
  Report Type: Spontaneous
  Country: US (occurrence: US)
  Receive Date: 20170829
  Receipt Date: 20171009
  Transmission Date: 20180320
  Serious: No
  Sender: FDA-Public Use
  Company Number: PHEH2017US026792

PATIENT
  Sex: Male

DRUGS (3)
  1. STARLIX [Suspect]
     Active Substance: NATEGLINIDE
     Indication: BLOOD GLUCOSE INCREASED
     Route: 065
  2. METFORMIN HCL TABLETS [Suspect]
     Active Substance: METFORMIN HYDROCHLORIDE
     Indication: BLOOD GLUCOSE INCREASED
     Route: 065
  3. ACTOS [Suspect]
     Active Substance: PIOGLITAZONE HYDROCHLORIDE
     Indication: BLOOD GLUCOSE INCREASED
     Route: 065

REACTIONS (2)
  - Blood glucose fluctuation [Unknown]
  - Presyncope [Unknown]
